FAERS Safety Report 5596346-4 (Version None)
Quarter: 2008Q1

REPORT INFORMATION
  Report Type: 
  Country: None (occurrence: None)
  Receive Date: 20080118
  Receipt Date: 20080110
  Transmission Date: 20080703
  Serious: Yes (Disabling)
  Sender: FDA-Public Use
  Company Number: US-MERCK-0705USA01442

PATIENT
  Age: 50 Year
  Sex: Female

DRUGS (2)
  1. FOSAMAX [Suspect]
     Indication: OSTEOPOROSIS
     Route: 048
     Dates: start: 20010101, end: 20040101
  2. ESTROGENS (UNSPECIFIED) [Concomitant]
     Indication: HORMONE THERAPY
     Route: 065
     Dates: start: 19940101

REACTIONS (8)
  - ADVERSE EVENT [None]
  - BLOOD CHOLESTEROL INCREASED [None]
  - DEPRESSION [None]
  - LOWER LIMB FRACTURE [None]
  - PAIN IN JAW [None]
  - ROTATOR CUFF SYNDROME [None]
  - TEMPOROMANDIBULAR JOINT SYNDROME [None]
  - UPPER LIMB FRACTURE [None]
